FAERS Safety Report 21250343 (Version 1)
Quarter: 2022Q3

REPORT INFORMATION
  Report Type: Spontaneous
  Country: US (occurrence: None)
  Receive Date: 20220823
  Receipt Date: 20220823
  Transmission Date: 20221026
  Serious: Yes (Other)
  Sender: FDA-Public Use
  Company Number: None

PATIENT
  Sex: Male

DRUGS (2)
  1. IMATINIB [Suspect]
     Active Substance: IMATINIB
     Indication: Gastrointestinal stromal tumour
     Dosage: FREQUENCY : TWICE A DAY;?TAKE 1 TABLET (400 MG) BY MOUTH TWICE DAILY. SHOULD BE TAKEN WITH FOOD AND
     Route: 048
     Dates: start: 20200917
  2. SUNITINIB [Concomitant]
     Active Substance: SUNITINIB

REACTIONS (1)
  - Surgery [None]
